FAERS Safety Report 8809460 (Version 2)
Quarter: 2014Q3

REPORT INFORMATION
  Report Type: Report from Study
  Country: US (occurrence: US)
  Receive Date: 20120926
  Receipt Date: 20140905
  Transmission Date: 20150326
  Serious: Yes (Death, Other)
  Sender: FDA-Public Use
  Company Number: US-ROCHE-1128061

PATIENT
  Sex: Female

DRUGS (3)
  1. TEMODAR [Concomitant]
     Active Substance: TEMOZOLOMIDE
  2. AVASTIN [Suspect]
     Active Substance: BEVACIZUMAB
     Indication: BRAIN NEOPLASM MALIGNANT
     Route: 065
  3. IRINOTECAN [Concomitant]
     Active Substance: IRINOTECAN

REACTIONS (5)
  - Off label use [Unknown]
  - Deep vein thrombosis [Unknown]
  - Death [Fatal]
  - Cystitis [Unknown]
  - Hemiparesis [Unknown]
